FAERS Safety Report 8379530-6 (Version None)
Quarter: 2012Q2

REPORT INFORMATION
  Report Type: 
  Country: None (occurrence: None)
  Receive Date: 20120523
  Receipt Date: 20120521
  Transmission Date: 20120825
  Serious: No
  Sender: FDA-Public Use
  Company Number: US-PFIZER INC-2012096362

PATIENT
  Sex: Male

DRUGS (2)
  1. PLAVIX [Concomitant]
     Dosage: UNK
  2. LIPITOR [Suspect]
     Dosage: UNK
     Dates: start: 20110301

REACTIONS (1)
  - NO ADVERSE EVENT [None]
